FAERS Safety Report 5635662-4 (Version None)
Quarter: 2008Q1

REPORT INFORMATION
  Report Type: 
  Country: None (occurrence: None)
  Receive Date: 20080219
  Receipt Date: 20080207
  Transmission Date: 20080703
  Serious: Yes (Life-Threatening, Other)
  Sender: FDA-Public Use
  Company Number: 062-21880-08020459

PATIENT
  Age: 39 Year
  Sex: Male
  Weight: 89 kg

DRUGS (3)
  1. REVLIMID [Suspect]
     Indication: HODGKIN'S DISEASE
     Dosage: 25 MG, DAILY, ORAL; ORAL; 25 MG,
     Route: 048
     Dates: start: 20071227, end: 20080113
  2. REVLIMID [Suspect]
     Indication: HODGKIN'S DISEASE
     Dosage: 25 MG, DAILY, ORAL; ORAL; 25 MG,
     Route: 048
     Dates: start: 20080121, end: 20080126
  3. REVLIMID [Suspect]
     Indication: HODGKIN'S DISEASE
     Dosage: 25 MG, DAILY, ORAL; ORAL; 25 MG,
     Route: 048
     Dates: start: 20071101

REACTIONS (5)
  - EMPHYSEMA [None]
  - NEUTROPENIC SEPSIS [None]
  - PNEUMONIA [None]
  - RESPIRATORY FAILURE [None]
  - URINARY TRACT INFECTION [None]
